FAERS Safety Report 19275911 (Version 2)
Quarter: 2022Q1

REPORT INFORMATION
  Report Type: Spontaneous
  Country: US (occurrence: US)
  Receive Date: 20210519
  Receipt Date: 20220309
  Transmission Date: 20220423
  Serious: Yes (Other)
  Sender: FDA-Public Use
  Company Number: US-SA-SAC20210518000099

PATIENT
  Sex: Male

DRUGS (8)
  1. ALPROLIX [Suspect]
     Active Substance: EFTRENONACOG ALFA
     Indication: Factor IX deficiency
     Dosage: 5800 IU, QW (5800 UNITS (+/-10%)
     Route: 042
     Dates: start: 201803
  2. ALPROLIX [Suspect]
     Active Substance: EFTRENONACOG ALFA
     Indication: Factor IX deficiency
     Dosage: 5800 IU, QW (5800 UNITS (+/-10%)
     Route: 042
     Dates: start: 201803
  3. ALPROLIX [Suspect]
     Active Substance: EFTRENONACOG ALFA
     Indication: Haemorrhage
     Dosage: 3840 IU, PRN (3840 UNITS (+/-10%; AS NEEDED FOR MILD/MODERATE BLEEDS/ PAIN)
     Route: 042
  4. ALPROLIX [Suspect]
     Active Substance: EFTRENONACOG ALFA
     Indication: Haemorrhage
     Dosage: 3840 IU, PRN (3840 UNITS (+/-10%; AS NEEDED FOR MILD/MODERATE BLEEDS/ PAIN)
     Route: 042
  5. ALPROLIX [Suspect]
     Active Substance: EFTRENONACOG ALFA
     Dosage: 7680 IU, PRN (7680 UNITS (+/-10%; DAILY AS NEEDED FOR MAJOR/SEVERE BLEEDS))
     Route: 042
  6. ALPROLIX [Suspect]
     Active Substance: EFTRENONACOG ALFA
     Dosage: 7680 IU, PRN (7680 UNITS (+/-10%; DAILY AS NEEDED FOR MAJOR/SEVERE BLEEDS))
     Route: 042
  7. ALPROLIX [Suspect]
     Active Substance: EFTRENONACOG ALFA
     Dosage: 5800 IU, BIW (5800 UNITS (+/-10%)
     Route: 042
     Dates: start: 201803
  8. ALPROLIX [Suspect]
     Active Substance: EFTRENONACOG ALFA
     Dosage: 5800 IU, BIW (5800 UNITS (+/-10%)
     Route: 042
     Dates: start: 201803

REACTIONS (1)
  - Haemorrhage [Unknown]
